FAERS Safety Report 7017757-6 (Version None)
Quarter: 2010Q3

REPORT INFORMATION
  Report Type: 
  Country: None (occurrence: None)
  Receive Date: 20100928
  Receipt Date: 20100916
  Transmission Date: 20110219
  Serious: Yes (Other)
  Sender: FDA-Public Use
  Company Number: FR-JNJFOC-20100906094

PATIENT
  Age: 37 Year
  Sex: Female

DRUGS (11)
  1. REMICADE [Suspect]
     Indication: PRODUCT USED FOR UNKNOWN INDICATION
     Route: 042
  2. REMICADE [Suspect]
     Route: 042
  3. REMICADE [Suspect]
     Route: 042
  4. REMICADE [Suspect]
     Route: 042
  5. METOJECT [Concomitant]
  6. SPECIAFOLDINE [Concomitant]
  7. CONTRACEPTION [Concomitant]
  8. ATARAX [Concomitant]
     Indication: PREMEDICATION
  9. SOLU-MEDROL [Concomitant]
     Indication: PREMEDICATION
  10. ADVIL LIQUI-GELS [Concomitant]
  11. IBUPROFEN TABLETS [Concomitant]

REACTIONS (2)
  - ARTHRALGIA [None]
  - UVEITIS [None]
